FAERS Safety Report 16350701 (Version 1)
Quarter: 2019Q2

REPORT INFORMATION
  Report Type: Spontaneous
  Country: US (occurrence: US)
  Receive Date: 20190524
  Receipt Date: 20190524
  Transmission Date: 20190711
  Serious: Yes (Other)
  Sender: FDA-Public Use
  Company Number: US-ACCORD-070597

PATIENT
  Age: 85 Year
  Sex: Female
  Weight: 58.06 kg

DRUGS (10)
  1. CARVEDILOL/CARVEDILOL HYDROCHLODRIDE [Concomitant]
     Dosage: BID
  2. GABAPENTIN. [Concomitant]
     Active Substance: GABAPENTIN
     Dosage: QD
  3. ALPHAGAN P [Concomitant]
     Active Substance: BRIMONIDINE TARTRATE
     Dosage: TID
  4. VENLAFAXINE/VENLAFAXINE HYDROCHLORIDE [Concomitant]
     Dosage: VENLAFAXINE ER, QD
  5. ATORVASTATIN [Concomitant]
     Active Substance: ATORVASTATIN
     Dosage: QD
  6. CLOPIDOGREL [Suspect]
     Active Substance: CLOPIDOGREL BISULFATE
     Indication: PROPHYLAXIS
     Dosage: STRENGTH: 75 MG, QD
     Route: 048
     Dates: start: 20180630
  7. XYLITOL [Concomitant]
     Active Substance: XYLITOL
  8. ELIQUIS [Concomitant]
     Active Substance: APIXABAN
     Dosage: BID
  9. LISINOPRIL. [Concomitant]
     Active Substance: LISINOPRIL
     Dosage: QD
  10. FUROSEMIDE. [Concomitant]
     Active Substance: FUROSEMIDE
     Dosage: QD

REACTIONS (1)
  - Eye haemorrhage [Unknown]

NARRATIVE: CASE EVENT DATE: 20180730
